FAERS Safety Report 11088279 (Version 1)
Quarter: 2015Q2

REPORT INFORMATION
  Report Type: Spontaneous
  Country: US (occurrence: US)
  Receive Date: 20150504
  Receipt Date: 20150504
  Transmission Date: 20150821
  Serious: Yes (Other)
  Sender: FDA-Public Use
  Company Number: US-PFIZER INC-2015144459

PATIENT

DRUGS (1)
  1. LYRICA [Suspect]
     Active Substance: PREGABALIN
     Dosage: UNK

REACTIONS (8)
  - Aphthous stomatitis [Unknown]
  - Hypoaesthesia eye [Unknown]
  - Ear pain [Unknown]
  - Eyelid ptosis [Unknown]
  - Hypoaesthesia oral [Unknown]
  - Headache [Unknown]
  - Hypoaesthesia [Unknown]
  - VIIth nerve paralysis [Unknown]
